FAERS Safety Report 4463025-6 (Version None)
Quarter: 2004Q3

REPORT INFORMATION
  Report Type: 
  Country: None (occurrence: None)
  Receive Date: 20040930
  Receipt Date: 20040920
  Transmission Date: 20050211
  Serious: Yes (Hospitalization)
  Sender: FDA-Public Use
  Company Number: GBWYE057022SEP04

PATIENT
  Age: 31 Year
  Sex: Female

DRUGS (3)
  1. ENBREL [Suspect]
     Indication: PSORIATIC ARTHROPATHY
     Dosage: 25 MG EVERY 1 TOT
     Route: 058
     Dates: start: 20040811, end: 20040811
  2. NEOSTIGMINE [Concomitant]
     Route: 048
  3. CO-CODAMOL [Concomitant]
     Dosage: 8/500 WHEN REQUIRED
     Route: 048

REACTIONS (4)
  - ABASIA [None]
  - DYSSTASIA [None]
  - SYNCOPE [None]
  - VOMITING [None]
